FAERS Safety Report 6285504-1 (Version None)
Quarter: 2009Q3

REPORT INFORMATION
  Report Type: 
  Country: None (occurrence: None)
  Receive Date: 20090727
  Receipt Date: 20090715
  Transmission Date: 20100115
  Serious: Yes (Hospitalization)
  Sender: FDA-Public Use
  Company Number: PHHY2009FR29403

PATIENT
  Sex: Male

DRUGS (3)
  1. LEPONEX [Suspect]
     Dosage: UNK
     Route: 048
  2. AMOXICILLIN [Interacting]
     Dosage: UNK
     Dates: start: 20090603, end: 20090610
  3. HELICIDINE [Interacting]
     Dosage: UNK
     Dates: start: 20090603, end: 20090610

REACTIONS (3)
  - AGGRESSION [None]
  - ANTIPSYCHOTIC DRUG LEVEL BELOW THERAPEUTIC [None]
  - DRUG INTERACTION [None]
